FAERS Safety Report 13601013 (Version 2)
Quarter: 2018Q2

REPORT INFORMATION
  Report Type: Spontaneous
  Country: US (occurrence: US)
  Receive Date: 20170601
  Receipt Date: 20180514
  Transmission Date: 20180711
  Serious: Yes (Hospitalization, Disabling, Other)
  Sender: FDA-Public Use
  Company Number: US-ELI_LILLY_AND_COMPANY-US201705012663

PATIENT
  Sex: Male
  Weight: 136 kg

DRUGS (7)
  1. BUPROPION HYDROCHLORIDE. [Concomitant]
     Active Substance: BUPROPION HYDROCHLORIDE
     Indication: CARDIAC DISORDER
     Dosage: UNK, UNKNOWN
     Route: 065
     Dates: start: 2012
  2. AXIRON [Suspect]
     Active Substance: TESTOSTERONE
     Indication: ANDROGEN REPLACEMENT THERAPY
     Dosage: UNK, UNKNOWN
     Route: 065
  3. CLOPIDOGREL [Concomitant]
     Active Substance: CLOPIDOGREL BISULFATE
     Indication: CARDIAC DISORDER
     Dosage: UNK, UNKNOWN
     Route: 065
     Dates: start: 2012
  4. ACETYLSALICYLIC ACID [Concomitant]
     Active Substance: ASPIRIN
     Indication: THROMBOSIS
     Dosage: UNK, UNKNOWN
     Route: 065
     Dates: start: 2012
  5. NORTRIPTYLINE [Concomitant]
     Active Substance: NORTRIPTYLINE
     Indication: CARDIAC DISORDER
     Dosage: UNK, UNKNOWN
     Route: 065
     Dates: start: 2012
  6. ATORVASTATIN [Concomitant]
     Active Substance: ATORVASTATIN
     Indication: BLOOD PRESSURE ABNORMAL
  7. ATORVASTATIN [Concomitant]
     Active Substance: ATORVASTATIN
     Indication: CARDIAC DISORDER
     Dosage: UNK, UNKNOWN
     Route: 065
     Dates: start: 2013

REACTIONS (4)
  - Pulmonary embolism [Unknown]
  - Thrombosis [Unknown]
  - Aortic aneurysm [Unknown]
  - Thrombosis [Unknown]

NARRATIVE: CASE EVENT DATE: 2012
